FAERS Safety Report 18268686 (Version 4)
Quarter: 2021Q1

REPORT INFORMATION
  Report Type: Spontaneous
  Country: DE (occurrence: DE)
  Receive Date: 20200915
  Receipt Date: 20210226
  Transmission Date: 20210419
  Serious: Yes (Death, Other)
  Sender: FDA-Public Use
  Company Number: DE-INCYTE CORPORATION-2020IN008809

PATIENT

DRUGS (4)
  1. JAKAVI [Suspect]
     Active Substance: RUXOLITINIB
     Indication: MYELOFIBROSIS
     Dosage: 30 MG, QD
     Route: 065
     Dates: end: 2020
  2. JAKAVI [Suspect]
     Active Substance: RUXOLITINIB
     Dosage: 5 MG
     Route: 065
     Dates: start: 20200917
  3. JAKAVI [Suspect]
     Active Substance: RUXOLITINIB
     Dosage: 20 MG, QD
     Route: 065
     Dates: start: 2020, end: 20200901
  4. JAKAVI [Suspect]
     Active Substance: RUXOLITINIB
     Dosage: UNK (15 MG AND 10 MG, ONE DAY 15 MG AND NEXT DAY 10 MG, ALTERNATING )
     Route: 065

REACTIONS (8)
  - Platelet count decreased [Unknown]
  - Psychotic disorder [Unknown]
  - Haemorrhage [Unknown]
  - Vision blurred [Unknown]
  - Death [Fatal]
  - Haemoglobin decreased [Recovering/Resolving]
  - Hallucination [Unknown]
  - Delusion [Unknown]

NARRATIVE: CASE EVENT DATE: 2020
